FAERS Safety Report 15680742 (Version 1)
Quarter: 2018Q4

REPORT INFORMATION
  Report Type: Spontaneous
  Country: US (occurrence: US)
  Receive Date: 20181203
  Receipt Date: 20181203
  Transmission Date: 20190205
  Serious: No
  Sender: FDA-Public Use
  Company Number: US-BAUSCH-BL-2018-000943

PATIENT
  Sex: Female
  Weight: 54.48 kg

DRUGS (3)
  1. ONEXTON [Suspect]
     Active Substance: BENZOYL PEROXIDE\CLINDAMYCIN PHOSPHATE
     Route: 061
     Dates: start: 20171228, end: 201712
  2. SULFACLEANSE [Concomitant]
     Indication: PRODUCT USED FOR UNKNOWN INDICATION
  3. ONEXTON [Suspect]
     Active Substance: BENZOYL PEROXIDE\CLINDAMYCIN PHOSPHATE
     Indication: ACNE
     Route: 061
     Dates: start: 2016

REACTIONS (3)
  - Burning sensation [Unknown]
  - Acne [Unknown]
  - Erythema [Unknown]
